FAERS Safety Report 23293997 (Version 8)
Quarter: 2025Q3

REPORT INFORMATION
  Report Type: Spontaneous
  Country: JP (occurrence: JP)
  Receive Date: 20231213
  Receipt Date: 20250809
  Transmission Date: 20251020
  Serious: Yes (Life-Threatening, Hospitalization, Disabling, Other)
  Sender: ALEXION PHARMACEUTICALS
  Company Number: 2023A274808

PATIENT
  Age: 76 Year
  Sex: Female
  Weight: 37 kg

DRUGS (12)
  1. IMFINZI [Suspect]
     Active Substance: DURVALUMAB
     Indication: Bile duct cancer
  2. NEXIUM [Concomitant]
     Active Substance: ESOMEPRAZOLE MAGNESIUM
     Dosage: 20 MILLIGRAM, QD
     Dates: start: 20230921
  3. GEMCITABINE HYDROCHLORIDE [Concomitant]
     Active Substance: GEMCITABINE HYDROCHLORIDE
     Indication: Bile duct cancer
  4. GEMCITABINE HYDROCHLORIDE [Concomitant]
     Active Substance: GEMCITABINE HYDROCHLORIDE
     Indication: Bile duct cancer
     Route: 065
     Dates: start: 20231019, end: 20231026
  5. CISPLATIN [Concomitant]
     Active Substance: CISPLATIN
     Indication: Bile duct cancer
  6. CISPLATIN [Concomitant]
     Active Substance: CISPLATIN
     Indication: Bile duct cancer
     Route: 065
  7. TENELIGLIPTIN [Concomitant]
     Active Substance: TENELIGLIPTIN
     Dosage: 40 MILLIGRAM, QD
     Dates: start: 20230921
  8. REPAGLINIDE [Concomitant]
     Active Substance: REPAGLINIDE
     Dosage: 1 MILLIGRAM, TID
     Dates: start: 20230921
  9. TRESIBA [Concomitant]
     Active Substance: INSULIN DEGLUDEC
     Dosage: 3 IU DAILY
     Route: 065
     Dates: start: 20230921
  10. PANCRELIPASE [Concomitant]
     Active Substance: PANCRELIPASE
     Dosage: 300 MILLIGRAM, TID
     Dates: start: 20230921
  11. REBAMIPIDE [Concomitant]
     Active Substance: REBAMIPIDE
     Dosage: 100 MILLIGRAM, TID
     Dates: start: 20230921
  12. NICORANDIL [Concomitant]
     Active Substance: NICORANDIL
     Dosage: 5 MILLIGRAM, TID
     Dates: start: 20230921

REACTIONS (3)
  - Immune-mediated myocarditis [Recovered/Resolved with Sequelae]
  - Immune-mediated myasthenia gravis [Not Recovered/Not Resolved]
  - Immune-mediated myositis [Recovering/Resolving]

NARRATIVE: CASE EVENT DATE: 20231116
